FAERS Safety Report 7136152-2 (Version None)
Quarter: 2010Q4

REPORT INFORMATION
  Report Type: 
  Country: None (occurrence: None)
  Receive Date: 20101205
  Receipt Date: 20101111
  Transmission Date: 20110411
  Serious: Yes (Life-Threatening, Hospitalization, Other)
  Sender: FDA-Public Use
  Company Number: JP-AMGEN-JPNSP2010005214

PATIENT

DRUGS (10)
  1. ENBREL [Suspect]
     Indication: RHEUMATOID ARTHRITIS
     Dosage: 25 MG, 2X/WEEK
     Route: 058
     Dates: start: 20080101
  2. FOSAMAX [Concomitant]
     Indication: FRACTURE
     Dosage: 35 MG, 1X/DAY
     Route: 048
  3. ALFAROL [Concomitant]
     Indication: FRACTURE
     Dosage: 0.5 UG, 1X/DAY
     Route: 048
  4. PARIET [Concomitant]
     Indication: PROPHYLAXIS AGAINST GASTROINTESTINAL ULCER
     Dosage: 10 MG, 1X/DAY
     Route: 048
  5. MAG-LAX [Concomitant]
     Indication: CONSTIPATION
     Dosage: 110 MG, 3X/DAY
     Route: 048
  6. PREDNISOLONE [Concomitant]
     Indication: RHEUMATOID ARTHRITIS
     Dosage: 5 MG, 1X/DAY
     Route: 048
  7. PREDNISOLONE [Concomitant]
     Dosage: 1 MG, 1X/DAY
  8. STARSIS [Concomitant]
     Indication: HYPERGLYCAEMIA
     Dosage: 30 MG, 3X/DAY
     Route: 048
  9. FERROUS CITRATE [Concomitant]
     Indication: MINERAL SUPPLEMENTATION
     Dosage: 50 MG, 1X/DAY
     Route: 048
  10. LIPITOR [Concomitant]
     Indication: HYPERLIPIDAEMIA
     Dosage: 10 MG, 1X/DAY
     Route: 048

REACTIONS (3)
  - INTERSTITIAL LUNG DISEASE [None]
  - LYMPHOCYTE COUNT INCREASED [None]
  - RHEUMATOID ARTHRITIS [None]
